FAERS Safety Report 5506570-4 (Version None)
Quarter: 2007Q4

REPORT INFORMATION
  Report Type: 
  Country: None (occurrence: None)
  Receive Date: 20071101
  Receipt Date: 20070911
  Transmission Date: 20080405
  Serious: Yes (Hospitalization)
  Sender: FDA-Public Use
  Company Number: 58190

PATIENT
  Sex: Female

DRUGS (1)
  1. ACETAMINOPHEN, ASPIRIN AND CAFFEINE [Suspect]
     Indication: HEADACHE
     Dosage: 1-2 TABLETS/EVERY 4 HOURS/ORAL;  X2 DAYS
     Route: 048

REACTIONS (3)
  - ASTHENIA [None]
  - DYSPNOEA [None]
  - GASTRIC HAEMORRHAGE [None]
